FAERS Safety Report 5399519-9 (Version None)
Quarter: 2007Q3

REPORT INFORMATION
  Report Type: 
  Country: None (occurrence: None)
  Receive Date: 20070727
  Receipt Date: 20070702
  Transmission Date: 20080115
  Serious: Yes (Death, Hospitalization)
  Sender: FDA-Public Use
  Company Number: US-PFIZER INC-2006119083

PATIENT
  Sex: Female
  Weight: 70.3 kg

DRUGS (2)
  1. BEXTRA [Suspect]
     Indication: ARTHRITIS
     Dates: start: 20030529, end: 20031114
  2. BEXTRA [Suspect]
     Indication: NECK PAIN

REACTIONS (1)
  - CEREBROVASCULAR ACCIDENT [None]
